FAERS Safety Report 4301647-3 (Version None)
Quarter: 2004Q1

REPORT INFORMATION
  Report Type: 
  Country: None (occurrence: None)
  Receive Date: 20040219
  Receipt Date: 20040203
  Transmission Date: 20041129
  Serious: Yes (Hospitalization)
  Sender: FDA-Public Use
  Company Number: 188750

PATIENT
  Age: 59 Year
  Sex: Female
  Weight: 81.6475 kg

DRUGS (4)
  1. AVONEX [Suspect]
     Indication: MULTIPLE SCLEROSIS
     Dosage: 30 MCG QW IM
     Route: 030
     Dates: start: 20020101, end: 20030101
  2. AVONEX [Suspect]
     Indication: MULTIPLE SCLEROSIS
     Dosage: 30 MCG QW IM
     Route: 030
     Dates: start: 20030101
  3. CELEXA [Concomitant]
  4. CELEBREX [Concomitant]

REACTIONS (7)
  - BALANCE DISORDER [None]
  - CONCUSSION [None]
  - FALL [None]
  - HIP FRACTURE [None]
  - MUSCLE SPASTICITY [None]
  - SKIN LACERATION [None]
  - UPPER LIMB FRACTURE [None]
